FAERS Safety Report 20072556 (Version 2)
Quarter: 2021Q4

REPORT INFORMATION
  Report Type: Spontaneous
  Country: PL (occurrence: PL)
  Receive Date: 20211116
  Receipt Date: 20211201
  Transmission Date: 20220303
  Serious: Yes (Death, Hospitalization, Other)
  Sender: FDA-Public Use
  Company Number: PL-JNJFOC-20211041869

PATIENT
  Age: 31 Year
  Sex: Female

DRUGS (3)
  1. SILDENAFIL [Suspect]
     Active Substance: SILDENAFIL
     Indication: Pulmonary arterial hypertension
     Dosage: 60 MILLIGRAM, ONCE A DAY
     Route: 065
     Dates: start: 20210713
  2. MACITENTAN [Suspect]
     Active Substance: MACITENTAN
     Indication: Pulmonary arterial hypertension
     Dosage: 10 MILLIGRAM, ONCE A DAY
     Route: 048
     Dates: start: 20210709
  3. VELETRI [Suspect]
     Active Substance: EPOPROSTENOL
     Indication: Pulmonary arterial hypertension
     Dosage: 1 UNK (EVERY MINUTE, (WITH AN ESCALATION BY 1.0 NG/KG/MIN EVERY 12H))
     Route: 042
     Dates: start: 20210708

REACTIONS (4)
  - Pulmonary arterial hypertension [Fatal]
  - Pyrexia [Recovered/Resolved]
  - Central venous catheterisation [Unknown]
  - Device leakage [Recovered/Resolved]

NARRATIVE: CASE EVENT DATE: 20210721
